FAERS Safety Report 6626142-8 (Version None)
Quarter: 2010Q1

REPORT INFORMATION
  Report Type: 
  Country: None (occurrence: None)
  Receive Date: 20100310
  Receipt Date: 20100225
  Transmission Date: 20100710
  Serious: Yes (Other)
  Sender: FDA-Public Use
  Company Number: PHHY2010BR11278

PATIENT
  Age: 26 Year
  Sex: Male
  Weight: 85 kg

DRUGS (2)
  1. RITALIN [Suspect]
     Dosage: 1 DF, BID
     Route: 048
  2. CITALOPRAM HYDROBROMIDE [Concomitant]

REACTIONS (5)
  - DYSPHORIA [None]
  - EUPHORIC MOOD [None]
  - HOMICIDE [None]
  - HYPERHIDROSIS [None]
  - TACHYCARDIA [None]
